FAERS Safety Report 8152700-8 (Version None)
Quarter: 2012Q1

REPORT INFORMATION
  Report Type: 
  Country: None (occurrence: None)
  Receive Date: 20120221
  Receipt Date: 20120209
  Transmission Date: 20120608
  Serious: Yes (Other)
  Sender: FDA-Public Use
  Company Number: NZ-JNJFOC-20120205287

PATIENT
  Age: 2 Year
  Sex: Female

DRUGS (2)
  1. ACETAMINOPHEN [Suspect]
     Indication: PRODUCT USED FOR UNKNOWN INDICATION
     Route: 048
  2. ACETAMINOPHEN [Suspect]
     Route: 048

REACTIONS (3)
  - FOAMING AT MOUTH [None]
  - ACCIDENTAL DRUG INTAKE BY CHILD [None]
  - CONVERSION DISORDER [None]
